FAERS Safety Report 10413776 (Version 2)
Quarter: 2014Q3

REPORT INFORMATION
  Report Type: Spontaneous
  Country: FR (occurrence: None)
  Receive Date: 20140825
  Receipt Date: 20140828
  Transmission Date: 20150326
  Serious: Yes (Life-Threatening)
  Sender: FDA-Public Use
  Company Number: 2491024

PATIENT
  Age: 28 Year
  Sex: Male

DRUGS (9)
  1. CIFLOX /00697201/ [Concomitant]
     Active Substance: CIPROFLOXACIN
  2. ZARZIO [Concomitant]
     Active Substance: FILGRASTIM
  3. VALIUM [Concomitant]
     Active Substance: DIAZEPAM
  4. CORTANCYL [Concomitant]
     Active Substance: PREDNISONE
  5. OXYNORM [Concomitant]
     Active Substance: OXYCODONE HYDROCHLORIDE
  6. CARBOPLATIN. [Concomitant]
     Active Substance: CARBOPLATIN
  7. LYRICA [Concomitant]
     Active Substance: PREGABALIN
  8. PACLITAXEL. [Suspect]
     Active Substance: PACLITAXEL
     Indication: ADENOCARCINOMA
     Dosage: UNKNOWN, UNKNOWN, INTRAVENOUS (NOT OTHERWISE SPECIFIED)?
     Route: 042
     Dates: start: 20140621, end: 20140711
  9. PROFENID [Concomitant]
     Active Substance: KETOPROFEN

REACTIONS (4)
  - Laryngeal oedema [None]
  - Erythema [None]
  - Anaphylactic shock [None]
  - Rash [None]

NARRATIVE: CASE EVENT DATE: 20140711
